FAERS Safety Report 8889560 (Version 1)
Quarter: 2012Q4

REPORT INFORMATION
  Report Type: 
  Country: FR (occurrence: FR)
  Receive Date: 20121107
  Receipt Date: 20121107
  Transmission Date: 20130627
  Serious: Yes (Other)
  Sender: FDA-Public Use
  Company Number: FR-COVIDIEN/TYCO HEALTHCARE/MALLINCKRODT-T201203847

PATIENT
  Age: 31 Year
  Sex: Male

DRUGS (1)
  1. OPTIJECT [Suspect]
     Indication: PRODUCT USED FOR UNKNOWN INDICATION
     Dosage: 100 ml, single
     Route: 042
     Dates: start: 20120717, end: 20120717

REACTIONS (4)
  - Erythema [Recovered/Resolved]
  - Rash [Recovered/Resolved]
  - Localised oedema [Recovered/Resolved]
  - Laryngeal discomfort [Recovered/Resolved]
